FAERS Safety Report 7147663-8 (Version None)
Quarter: 2010Q4

REPORT INFORMATION
  Report Type: 
  Country: None (occurrence: None)
  Receive Date: 20101209
  Receipt Date: 20101130
  Transmission Date: 20110411
  Serious: No
  Sender: FDA-Public Use
  Company Number: US-BIOGENIDEC-2010BI042377

PATIENT
  Age: 45 Year
  Sex: Male

DRUGS (2)
  1. TYSABRI [Suspect]
     Indication: MULTIPLE SCLEROSIS
     Route: 042
     Dates: start: 20061030
  2. TYSABRI [Suspect]
     Route: 042
     Dates: start: 20041213, end: 20050114

REACTIONS (5)
  - FATIGUE [None]
  - FEELING ABNORMAL [None]
  - GENERAL SYMPTOM [None]
  - PYREXIA [None]
  - RESPIRATORY TRACT CONGESTION [None]
